FAERS Safety Report 25099314 (Version 1)
Quarter: 2025Q1

REPORT INFORMATION
  Report Type: Spontaneous
  Country: US (occurrence: None)
  Receive Date: 20250319
  Receipt Date: 20250319
  Transmission Date: 20250409
  Serious: Yes (Life-Threatening, Hospitalization)
  Sender: FDA-CTU
  Company Number: None

PATIENT
  Age: 43 Year
  Sex: Female
  Weight: 60.75 kg

DRUGS (1)
  1. CAMPRAL [Suspect]
     Active Substance: ACAMPROSATE CALCIUM
     Indication: Alcoholism
     Dates: start: 20240515, end: 20240606

REACTIONS (3)
  - Hallucination [None]
  - Delusion [None]
  - Confusional state [None]

NARRATIVE: CASE EVENT DATE: 20240606
